FAERS Safety Report 9581009 (Version 2)
Quarter: 2013Q4

REPORT INFORMATION
  Report Type: Spontaneous
  Country: DE (occurrence: DE)
  Receive Date: 20131002
  Receipt Date: 20131023
  Transmission Date: 20140711
  Serious: Yes (Life-Threatening, Hospitalization)
  Sender: FDA-Public Use
  Company Number: DE-ELI_LILLY_AND_COMPANY-DE201309009715

PATIENT
  Age: 68 Year
  Sex: Male
  Weight: 134 kg

DRUGS (4)
  1. EFIENT [Suspect]
     Indication: CORONARY ARTERY DISEASE
     Dosage: 10 MG, QD
     Route: 048
     Dates: start: 20120918
  2. EFIENT [Suspect]
     Indication: PERIPHERAL ARTERIAL OCCLUSIVE DISEASE
  3. EFIENT [Suspect]
     Indication: TYPE 2 DIABETES MELLITUS
  4. ASS [Concomitant]

REACTIONS (3)
  - Coronary artery restenosis [Unknown]
  - Acute myocardial infarction [Unknown]
  - Off label use [Unknown]
